FAERS Safety Report 4973923-2 (Version None)
Quarter: 2006Q2

REPORT INFORMATION
  Report Type: 
  Country: None (occurrence: None)
  Receive Date: 20060417
  Receipt Date: 20060404
  Transmission Date: 20061013
  Serious: Yes (Other)
  Sender: FDA-Public Use
  Company Number: 2006PK00659

PATIENT
  Age: 70 Year
  Sex: Male

DRUGS (10)
  1. SEROQUEL [Suspect]
     Indication: SCHIZOPHRENIA
     Route: 048
  2. SEROQUEL [Interacting]
     Route: 048
  3. SEROQUEL [Interacting]
     Route: 048
  4. ZIPRASIDONE HCL [Suspect]
     Indication: SCHIZOPHRENIA
  5. ZIPRASIDON [Interacting]
  6. CAPTOPRIL [Concomitant]
     Indication: HYPERTENSION
     Dosage: LONG TERM MEDICATION
  7. ZOPICLON [Concomitant]
  8. LORAZEPAM [Concomitant]
     Dosage: FIRST WEEK
  9. LORAZEPAM [Concomitant]
     Dosage: SECOND WEEK
  10. LORAZEPAM [Concomitant]

REACTIONS (4)
  - COMPLETED SUICIDE [None]
  - DRUG INTERACTION [None]
  - ELECTROCARDIOGRAM QT CORRECTED INTERVAL PROLONGED [None]
  - EXTRASYSTOLES [None]
